FAERS Safety Report 7716030-8 (Version None)
Quarter: 2011Q3

REPORT INFORMATION
  Report Type: 
  Country: None (occurrence: None)
  Receive Date: 20110823
  Receipt Date: 20110808
  Transmission Date: 20111222
  Serious: Yes (Hospitalization)
  Sender: FDA-Public Use
  Company Number: DSM-2011-00765

PATIENT
  Age: 75 Year
  Sex: Male
  Weight: 87 kg

DRUGS (4)
  1. METOPROLOL (METOPROLOL) (100 MILLIGRAM) (METOPROLOL) [Concomitant]
  2. OLMESARTAN MEDOXOMIL/AMLODIPINE BESYLATE/HYDROCHLOROTHIAZIDE [Suspect]
     Indication: HYPERTENSION
     Dosage: 40/5/25 MG,ORAL
     Route: 048
     Dates: start: 20110523
  3. AMLODIPINE [Concomitant]
  4. MARCUMAR (PHENPROCOUMON) (PHENPROCOUMON) [Concomitant]

REACTIONS (3)
  - ATRIAL FIBRILLATION [None]
  - CEREBROVASCULAR ACCIDENT [None]
  - HYPOTENSION [None]
